FAERS Safety Report 4515724-5 (Version None)
Quarter: 2004Q4

REPORT INFORMATION
  Report Type: 
  Country: None (occurrence: None)
  Receive Date: 20041201
  Receipt Date: 20041027
  Transmission Date: 20050328
  Serious: Yes (Hospitalization, Disabling)
  Sender: FDA-Public Use
  Company Number: DE-MERCK-0410DEU00765

PATIENT
  Age: 50 Year
  Sex: Female
  Weight: 114 kg

DRUGS (1)
  1. VIOXX [Suspect]
     Indication: MUSCULOSKELETAL PAIN
     Route: 048
     Dates: start: 20010101, end: 20040401

REACTIONS (4)
  - BASILAR ARTERY STENOSIS [None]
  - HYPERTENSION [None]
  - MIGRAINE [None]
  - VERTEBRAL ARTERY STENOSIS [None]
